FAERS Safety Report 5814311-6 (Version None)
Quarter: 2008Q3

REPORT INFORMATION
  Report Type: 
  Country: None (occurrence: None)
  Receive Date: 20080711
  Receipt Date: 20080630
  Transmission Date: 20090109
  Serious: Yes (Hospitalization)
  Sender: FDA-Public Use
  Company Number: 2008IP000039

PATIENT
  Age: 56 Year
  Sex: Female

DRUGS (9)
  1. XIBROM [Suspect]
     Indication: CONJUNCTIVITIS VIRAL
     Dosage: 1 GTT; BID; OPH
     Route: 047
     Dates: start: 20080531, end: 20080609
  2. PREDNISONE TAB [Concomitant]
  3. EVOXAC [Concomitant]
  4. METHOTREXATE SODIUM [Concomitant]
  5. FOLIC ACID [Concomitant]
  6. ALBUTEROL [Concomitant]
  7. SINGULAIR [Concomitant]
  8. VICODIN [Concomitant]
  9. RESTASIS [Concomitant]

REACTIONS (3)
  - CORNEAL EPITHELIUM DEFECT [None]
  - CORNEAL PERFORATION [None]
  - CORNEAL TRANSPLANT [None]
